FAERS Safety Report 25943650 (Version 2)
Quarter: 2025Q4

REPORT INFORMATION
  Report Type: Report from Study
  Country: CO (occurrence: CO)
  Receive Date: 20251021
  Receipt Date: 20251103
  Transmission Date: 20260117
  Serious: Yes (Hospitalization)
  Sender: RECORDATI
  Company Number: CO-RECORDATI RARE DISEASES-2025007328

PATIENT
  Age: 30 Year
  Sex: Female
  Weight: 60 kg

DRUGS (1)
  1. PANHEMATIN [Suspect]
     Active Substance: HEMIN
     Indication: Porphyria acute
     Dosage: 1 DOSAGE FORM, QD (1 VIAL, EVERY 24 HOURS TOTAL 13 VIALS)
     Route: 042
     Dates: start: 20250913, end: 2025

REACTIONS (1)
  - Hepatic failure [Recovering/Resolving]

NARRATIVE: CASE EVENT DATE: 20251001
